FAERS Safety Report 8438916-1 (Version None)
Quarter: 2012Q2

REPORT INFORMATION
  Report Type: 
  Country: None (occurrence: None)
  Receive Date: 20120615
  Receipt Date: 20120605
  Transmission Date: 20120825
  Serious: Yes (Hospitalization, Other)
  Sender: FDA-Public Use
  Company Number: IE-JNJFOC-20120606495

PATIENT

DRUGS (2)
  1. PALEXIA SR [Suspect]
     Indication: PRODUCT USED FOR UNKNOWN INDICATION
     Route: 048
  2. ALL OTHER THERAPEUTIC PRODUCTS [Concomitant]
     Indication: PRODUCT USED FOR UNKNOWN INDICATION
     Route: 065

REACTIONS (5)
  - MUSCLE SPASMS [None]
  - VITAL FUNCTIONS ABNORMAL [None]
  - OVERDOSE [None]
  - ABASIA [None]
  - SELF-MEDICATION [None]
